FAERS Safety Report 6604798-3 (Version None)
Quarter: 2010Q1

REPORT INFORMATION
  Report Type: 
  Country: None (occurrence: None)
  Receive Date: 20100226
  Receipt Date: 20100219
  Transmission Date: 20100710
  Serious: Yes (Other)
  Sender: FDA-Public Use
  Company Number: BE-ROCHE-686608

PATIENT
  Sex: Female
  Weight: 55 kg

DRUGS (3)
  1. ACTEMRA [Suspect]
     Indication: RHEUMATOID ARTHRITIS
     Route: 042
     Dates: start: 20090901, end: 20100218
  2. XANTHIUM [Concomitant]
     Dosage: DOSE WAS UNKNOWN, FREQUENCY DAILY
     Route: 048
     Dates: start: 20050801
  3. APROVEL [Concomitant]
     Indication: HYPERTENSION
     Dosage: DOSE WAS UNKNOWN, FREQUENCY DAILY
     Route: 048
     Dates: start: 20050701

REACTIONS (1)
  - OESOPHAGEAL SQUAMOUS CELL CARCINOMA [None]
